FAERS Safety Report 9464331 (Version 3)
Quarter: 2014Q2

REPORT INFORMATION
  Report Type: Spontaneous
  Country: PL (occurrence: PL)
  Receive Date: 20130819
  Receipt Date: 20140627
  Transmission Date: 20141212
  Serious: Yes (Life-Threatening)
  Sender: FDA-Public Use
  Company Number: PL-JNJFOC-20130808086

PATIENT
  Age: 88 Year
  Sex: Male
  Weight: 70 kg

DRUGS (4)
  1. XARELTO [Suspect]
     Indication: ARRHYTHMIA
     Route: 048
     Dates: start: 20130218, end: 20130409
  2. FUROSEMID [Concomitant]
     Indication: CARDIAC FAILURE
     Route: 048
     Dates: start: 2004
  3. KALIPOZ [Concomitant]
     Indication: CARDIAC FAILURE
     Dosage: DOSAGE TEXT: 2 UNK, UNK
     Route: 048
     Dates: start: 2004
  4. VIVACOR [Concomitant]
     Indication: CARDIAC FAILURE
     Route: 048
     Dates: start: 2011

REACTIONS (2)
  - Anaemia [Recovered/Resolved]
  - Asthenia [Recovered/Resolved]
